FAERS Safety Report 7286924-9 (Version None)
Quarter: 2011Q1

REPORT INFORMATION
  Report Type: 
  Country: None (occurrence: None)
  Receive Date: 20110211
  Receipt Date: 20110201
  Transmission Date: 20110831
  Serious: Yes (Other)
  Sender: FDA-Public Use
  Company Number: US-BIOGENIDEC-2009BI010384

PATIENT
  Age: 60 Year
  Sex: Female

DRUGS (4)
  1. PROVIGIL [Concomitant]
     Indication: FATIGUE
     Dates: start: 19900101
  2. AVONEX [Suspect]
     Indication: MULTIPLE SCLEROSIS
     Route: 030
     Dates: start: 20060828
  3. CRESTOR [Concomitant]
  4. LOVAZA [Concomitant]

REACTIONS (16)
  - CARDIAC HYPERTROPHY [None]
  - AORTIC VALVE SCLEROSIS [None]
  - MITRAL VALVE DISEASE [None]
  - ASPIRATION [None]
  - EJECTION FRACTION DECREASED [None]
  - BUNDLE BRANCH BLOCK RIGHT [None]
  - LEFT ATRIAL DILATATION [None]
  - NEUROGENIC BLADDER [None]
  - VOMITING [None]
  - DIARRHOEA [None]
  - CARDIOMYOPATHY [None]
  - HYPERTROPHIC CARDIOMYOPATHY [None]
  - MITRAL VALVE INCOMPETENCE [None]
  - HEPATIC ENZYME ABNORMAL [None]
  - SERUM FERRITIN INCREASED [None]
  - HYPOAESTHESIA [None]
